FAERS Safety Report 11053031 (Version 4)
Quarter: 2023Q2

REPORT INFORMATION
  Report Type: Spontaneous
  Country: US (occurrence: US)
  Receive Date: 20150421
  Receipt Date: 20230617
  Transmission Date: 20230721
  Serious: Yes (Other)
  Sender: FDA-Public Use
  Company Number: US-JNJFOC-20120412671

PATIENT
  Age: 1 Decade
  Sex: Male
  Weight: 74.91 kg

DRUGS (7)
  1. RISPERIDONE [Suspect]
     Active Substance: RISPERIDONE
     Indication: Attention deficit hyperactivity disorder
     Route: 048
     Dates: start: 2002
  2. RISPERIDONE [Suspect]
     Active Substance: RISPERIDONE
     Indication: Behaviour disorder
     Dosage: VARYING DOSES OF 0.5 AND 1 MG
     Route: 048
     Dates: start: 2006, end: 2007
  3. RISPERIDONE [Suspect]
     Active Substance: RISPERIDONE
     Indication: Psychotic disorder
     Dosage: 0.5 - 2 MG
     Route: 048
     Dates: start: 2007, end: 2009
  4. RISPERIDONE [Suspect]
     Active Substance: RISPERIDONE
     Indication: Mood swings
     Route: 048
     Dates: end: 2012
  5. RISPERIDONE [Suspect]
     Active Substance: RISPERIDONE
     Dosage: 0.5 - 2 MG
     Route: 048
     Dates: end: 2014
  6. RISPERIDONE [Suspect]
     Active Substance: RISPERIDONE
     Indication: Product used for unknown indication
     Route: 048
  7. ABILIFY [Concomitant]
     Active Substance: ARIPIPRAZOLE
     Route: 065
     Dates: start: 2000, end: 2012

REACTIONS (3)
  - Tardive dyskinesia [Unknown]
  - Gynaecomastia [Unknown]
  - Abnormal weight gain [Unknown]

NARRATIVE: CASE EVENT DATE: 20020101
